FAERS Safety Report 18541039 (Version 2)
Quarter: 2020Q4

REPORT INFORMATION
  Report Type: Report from Study
  Country: US (occurrence: US)
  Receive Date: 20201124
  Receipt Date: 20201223
  Transmission Date: 20210114
  Serious: No
  Sender: FDA-Public Use
  Company Number: US-DSJP-DSU-2020-134575

PATIENT
  Age: 71 Year
  Sex: Female

DRUGS (4)
  1. PEXIDARTINIB [Suspect]
     Active Substance: PEXIDARTINIB
     Dosage: UNK DF, QD
     Route: 048
     Dates: start: 2020, end: 2020
  2. PEXIDARTINIB [Suspect]
     Active Substance: PEXIDARTINIB
     Indication: PRODUCT USED FOR UNKNOWN INDICATION
     Dosage: 2 DF, BID
     Route: 048
     Dates: start: 202003, end: 2020
  3. PEXIDARTINIB [Suspect]
     Active Substance: PEXIDARTINIB
     Dosage: 1 DF, QOD
     Route: 048
     Dates: start: 2020, end: 2020
  4. PEXIDARTINIB [Suspect]
     Active Substance: PEXIDARTINIB
     Dosage: 1 DF, QD
     Route: 048
     Dates: start: 20200809

REACTIONS (6)
  - Alanine aminotransferase increased [Unknown]
  - Ill-defined disorder [Unknown]
  - Off label use [Unknown]
  - Pain in extremity [Unknown]
  - Aspartate aminotransferase increased [Unknown]
  - Neoplasm [Unknown]

NARRATIVE: CASE EVENT DATE: 202003
